APPROVED DRUG PRODUCT: FREAMINE III 3% W/ ELECTROLYTES
Active Ingredient: AMINO ACIDS; MAGNESIUM ACETATE; PHOSPHORIC ACID; POTASSIUM CHLORIDE; SODIUM ACETATE; SODIUM CHLORIDE
Strength: 3%;54MG/100ML;40MG/100ML;150MG/100ML;200MG/100ML;120MG/100ML
Dosage Form/Route: INJECTABLE;INJECTION
Application: N016822 | Product #003
Applicant: B BRAUN MEDICAL INC
Approved: Approved Prior to Jan 1, 1982 | RLD: No | RS: No | Type: DISCN